FAERS Safety Report 11889783 (Version 1)
Quarter: 2016Q1

REPORT INFORMATION
  Report Type: Report from Study
  Country: US (occurrence: US)
  Receive Date: 20160105
  Receipt Date: 20160105
  Transmission Date: 20160526
  Serious: Yes (Hospitalization, Other)
  Sender: FDA-Public Use
  Company Number: US-ASTRAZENECA-2015SE92589

PATIENT
  Sex: Male
  Weight: 80.7 kg

DRUGS (13)
  1. FUROSEMIDE. [Concomitant]
     Active Substance: FUROSEMIDE
  2. PRIMIDONE. [Concomitant]
     Active Substance: PRIMIDONE
  3. PANTOPRAZOLE [Concomitant]
     Active Substance: PANTOPRAZOLE SODIUM
  4. ALLOPURINOL. [Concomitant]
     Active Substance: ALLOPURINOL
  5. PREDNISONE. [Concomitant]
     Active Substance: PREDNISONE
  6. CAREFATE [Concomitant]
  7. PLAVIX [Concomitant]
     Active Substance: CLOPIDOGREL BISULFATE
  8. LITHIUM. [Concomitant]
     Active Substance: LITHIUM
  9. COLCHICINE. [Concomitant]
     Active Substance: COLCHICINE
  10. DALIRESP [Suspect]
     Active Substance: ROFLUMILAST
     Indication: CHRONIC OBSTRUCTIVE PULMONARY DISEASE
     Route: 048
     Dates: start: 2013
  11. AZSE [Concomitant]
  12. MAGNESIUM [Concomitant]
     Active Substance: MAGNESIUM
  13. ARFORMOTEROL [Concomitant]
     Active Substance: ARFORMOTEROL

REACTIONS (4)
  - Tremor [Unknown]
  - Gait disturbance [Unknown]
  - Dyspnoea [Unknown]
  - Myocardial infarction [Unknown]
